FAERS Safety Report 5188709-6 (Version None)
Quarter: 2006Q4

REPORT INFORMATION
  Report Type: 
  Country: None (occurrence: None)
  Receive Date: 20061214
  Receipt Date: 20061201
  Transmission Date: 20070319
  Serious: Yes (Hospitalization, Other)
  Sender: FDA-Public Use
  Company Number: 2006134964

PATIENT
  Age: 75 Year
  Sex: Male
  Weight: 73.9363 kg

DRUGS (1)
  1. SUTENT [Suspect]
     Indication: GASTROINTESTINAL NEOPLASM
     Dosage: ORAL
     Route: 048
     Dates: start: 20060601

REACTIONS (5)
  - BRADYCARDIA [None]
  - CHEST PAIN [None]
  - DIZZINESS [None]
  - NEPHRITIS INTERSTITIAL [None]
  - RENAL FAILURE ACUTE [None]
